FAERS Safety Report 25825053 (Version 3)
Quarter: 2025Q3

REPORT INFORMATION
  Report Type: Other
  Country: US (occurrence: US)
  Receive Date: 20250919
  Receipt Date: 20250930
  Transmission Date: 20251020
  Serious: No
  Sender: TRAVERE THERAPEUTICS
  Company Number: US-TRAVERE-2025TVT01126

PATIENT
  Age: 55 Year
  Sex: Male

DRUGS (3)
  1. FILSPARI [Suspect]
     Active Substance: SPARSENTAN
     Indication: IgA nephropathy
     Route: 048
     Dates: start: 20250630
  2. FILSPARI [Suspect]
     Active Substance: SPARSENTAN
     Route: 048
     Dates: end: 20250730
  3. OZEMPIC [Suspect]
     Active Substance: SEMAGLUTIDE

REACTIONS (9)
  - Weight decreased [Recovering/Resolving]
  - Nausea [Unknown]
  - Decreased appetite [Unknown]
  - Feeling abnormal [Unknown]
  - Illness [Recovering/Resolving]
  - Feeding disorder [Recovering/Resolving]
  - Laboratory test abnormal [Recovering/Resolving]
  - Renal failure [Recovering/Resolving]
  - Abdominal discomfort [Recovering/Resolving]

NARRATIVE: CASE EVENT DATE: 20250703
